FAERS Safety Report 18918153 (Version 3)
Quarter: 2021Q3

REPORT INFORMATION
  Report Type: Report from Study
  Country: None (occurrence: US)
  Receive Date: 20210220
  Receipt Date: 20210704
  Transmission Date: 20211014
  Serious: Yes (Hospitalization, Other)
  Sender: FDA-Public Use
  Company Number: US-ABBVIE-21K-163-3777773-00

PATIENT
  Age: 36 Year
  Sex: Male

DRUGS (2)
  1. HUMIRA [Suspect]
     Active Substance: ADALIMUMAB
     Indication: CROHN^S DISEASE
     Dosage: CF
     Route: 058
     Dates: start: 20200502, end: 2020
  2. HUMIRA [Suspect]
     Active Substance: ADALIMUMAB
     Dosage: CF
     Route: 058
     Dates: start: 202101

REACTIONS (9)
  - Gastritis [Recovering/Resolving]
  - Enteritis [Recovering/Resolving]
  - Diarrhoea [Not Recovered/Not Resolved]
  - Ectopic gastric mucosa [Recovering/Resolving]
  - Intestinal resection [Unknown]
  - Pain [Unknown]
  - Off label use [Unknown]
  - Appendicectomy [Unknown]
  - Frequent bowel movements [Not Recovered/Not Resolved]

NARRATIVE: CASE EVENT DATE: 20201214
